FAERS Safety Report 4739840-8 (Version None)
Quarter: 2005Q3

REPORT INFORMATION
  Report Type: 
  Country: None (occurrence: None)
  Receive Date: 20050810
  Receipt Date: 20050513
  Transmission Date: 20060218
  Serious: No
  Sender: FDA-Public Use
  Company Number: US-GLAXOSMITHKLINE-A0559201A

PATIENT
  Sex: Female

DRUGS (2)
  1. PAROXETINE HCL [Suspect]
     Indication: MENOPAUSAL SYMPTOMS
     Dosage: 10MG UNKNOWN
     Route: 048
     Dates: start: 20050101
  2. PAXIL CR [Suspect]
     Indication: MENOPAUSAL SYMPTOMS

REACTIONS (8)
  - ANXIETY [None]
  - DIZZINESS [None]
  - DRUG WITHDRAWAL SYNDROME [None]
  - FATIGUE [None]
  - INSOMNIA [None]
  - NAUSEA [None]
  - PARAESTHESIA [None]
  - TREMOR [None]
